FAERS Safety Report 4371275-2 (Version None)
Quarter: 2004Q2

REPORT INFORMATION
  Report Type: 
  Country: None (occurrence: None)
  Receive Date: 20040604
  Receipt Date: 20030130
  Transmission Date: 20050107
  Serious: Yes (Other)
  Sender: FDA-Public Use
  Company Number: US-MERCK-0302USA00002

PATIENT
  Age: 73 Year
  Sex: Female
  Weight: 75 kg

DRUGS (12)
  1. PREMARIN [Concomitant]
     Indication: PROPHYLAXIS
     Route: 065
     Dates: start: 19610101, end: 20020101
  2. LASIX [Concomitant]
     Indication: OEDEMA PERIPHERAL
     Route: 065
     Dates: start: 20000501, end: 20010501
  3. PLAQUENIL [Concomitant]
     Indication: ARTHRALGIA
     Route: 065
     Dates: start: 20001101
  4. PLAQUENIL [Concomitant]
     Indication: INFLAMMATION
     Route: 065
     Dates: start: 20001101
  5. ACCUPRIL [Concomitant]
     Indication: HYPERTENSION
     Route: 065
     Dates: start: 20000329, end: 20010914
  6. VIOXX [Suspect]
     Indication: ARTHRALGIA
     Route: 048
     Dates: start: 20000201, end: 20010901
  7. VIOXX [Suspect]
     Route: 048
     Dates: start: 20010901, end: 20011001
  8. VIOXX [Suspect]
     Route: 048
     Dates: start: 20011001, end: 20021001
  9. VIOXX [Suspect]
     Indication: INFLAMMATION
     Route: 048
     Dates: start: 20000201, end: 20010901
  10. VIOXX [Suspect]
     Route: 048
     Dates: start: 20010901, end: 20011001
  11. VIOXX [Suspect]
     Route: 048
     Dates: start: 20011001, end: 20021001
  12. ULTRAM [Concomitant]
     Route: 065
     Dates: start: 20000601

REACTIONS (9)
  - DEEP VEIN THROMBOSIS [None]
  - DIABETES MELLITUS [None]
  - DYSPNOEA [None]
  - HYPERTENSION [None]
  - INJURY [None]
  - INTERVERTEBRAL DISC DEGENERATION [None]
  - MENISCUS LESION [None]
  - OEDEMA PERIPHERAL [None]
  - PHLEBITIS [None]
